FAERS Safety Report 16383435 (Version 1)
Quarter: 2019Q2

REPORT INFORMATION
  Report Type: Spontaneous
  Country: US (occurrence: US)
  Receive Date: 20190603
  Receipt Date: 20190603
  Transmission Date: 20190711
  Serious: Yes (Other)
  Sender: FDA-Public Use
  Company Number: US-PFIZER INC-2019232899

PATIENT
  Age: 82 Year
  Sex: Female
  Weight: 76.19 kg

DRUGS (1)
  1. XALKORI [Suspect]
     Active Substance: CRIZOTINIB
     Indication: SMALL CELL LUNG CANCER
     Dosage: UNK
     Route: 048
     Dates: start: 201508, end: 201510

REACTIONS (4)
  - Dizziness [Unknown]
  - Neuropathy peripheral [Unknown]
  - Eye disorder [Unknown]
  - Oedema [Unknown]
